FAERS Safety Report 10214617 (Version 1)
Quarter: 2014Q2

REPORT INFORMATION
  Report Type: Spontaneous
  Country: SE (occurrence: SE)
  Receive Date: 20140603
  Receipt Date: 20140603
  Transmission Date: 20141212
  Serious: Yes (Hospitalization)
  Sender: FDA-Public Use
  Company Number: SE-GLAXOSMITHKLINE-B0999272A

PATIENT
  Age: 79 Year
  Sex: Female

DRUGS (8)
  1. LAMICTAL [Suspect]
     Indication: PRODUCT USED FOR UNKNOWN INDICATION
     Dosage: 50MG TWICE PER DAY
     Route: 065
  2. KALCIPOS D [Concomitant]
  3. CLOPIDOGREL [Concomitant]
  4. FELODIPINE [Concomitant]
  5. SIMVASTATIN [Concomitant]
  6. LEVAXIN [Concomitant]
  7. LATANOPROST [Concomitant]
  8. SODIUM FLUORIDE [Concomitant]

REACTIONS (1)
  - Depressed level of consciousness [Unknown]
